FAERS Safety Report 8612171-1 (Version None)
Quarter: 2012Q3

REPORT INFORMATION
  Report Type: 
  Country: None (occurrence: None)
  Receive Date: 20120822
  Receipt Date: 20120820
  Transmission Date: 20120928
  Serious: Yes (Death)
  Sender: FDA-Public Use
  Company Number: FR-B.I. PHARMACEUTICALS,INC./RIDGEFIELD-2012-FF-01078FF

PATIENT
  Sex: Female

DRUGS (3)
  1. PHENYTOIN SODIUM [Concomitant]
  2. KEPPRA [Concomitant]
  3. PRADAXA [Suspect]
     Indication: ATRIAL FIBRILLATION
     Dosage: 150 MG
     Route: 048

REACTIONS (2)
  - ISCHAEMIC STROKE [None]
  - UNDERDOSE [None]
